FAERS Safety Report 21883217 (Version 4)
Quarter: 2023Q1

REPORT INFORMATION
  Report Type: Spontaneous
  Country: JP (occurrence: JP)
  Receive Date: 20230119
  Receipt Date: 20230214
  Transmission Date: 20230417
  Serious: Yes (Death, Hospitalization, Other)
  Sender: FDA-Public Use
  Company Number: JP-CHUGAI-2022018434

PATIENT
  Age: 78 Year
  Sex: Male
  Weight: 82.9 kg

DRUGS (8)
  1. TECENTRIQ [Suspect]
     Active Substance: ATEZOLIZUMAB
     Indication: Hepatocellular carcinoma
     Dosage: 1200 MILLIGRAM, SINGLE
     Route: 041
     Dates: start: 20220112, end: 20220112
  2. TECENTRIQ [Suspect]
     Active Substance: ATEZOLIZUMAB
     Dosage: 1200 MILLIGRAM, SINGLE
     Route: 041
     Dates: start: 20220404, end: 20220404
  3. AVASTIN [Suspect]
     Active Substance: BEVACIZUMAB
     Indication: Hepatocellular carcinoma
     Dosage: 1240 MILLIGRAM, SINGLE
     Route: 041
     Dates: start: 20220112, end: 20220112
  4. AVASTIN [Suspect]
     Active Substance: BEVACIZUMAB
     Dosage: 1060 MILLIGRAM, SINGLE
     Route: 041
     Dates: start: 20220404, end: 20220404
  5. LEVOTHYROXINE SODIUM [Concomitant]
     Active Substance: LEVOTHYROXINE SODIUM
     Route: 065
  6. NORVASC [Concomitant]
     Active Substance: AMLODIPINE BESYLATE
     Route: 065
  7. IMIDAPRIL [Concomitant]
     Active Substance: IMIDAPRIL
     Route: 065
  8. TENELIGLIPTIN [Concomitant]
     Active Substance: TENELIGLIPTIN
     Dosage: UNK
     Route: 065
     Dates: start: 20220108

REACTIONS (7)
  - Pyrexia [Recovering/Resolving]
  - Tumour haemorrhage [Recovering/Resolving]
  - Renal impairment [Recovering/Resolving]
  - Tubulointerstitial nephritis [Unknown]
  - Hepatic function abnormal [Recovered/Resolved]
  - Hepatic function abnormal [Unknown]
  - Disease progression [Fatal]

NARRATIVE: CASE EVENT DATE: 20220116
